FAERS Safety Report 19346726 (Version 1)
Quarter: 2021Q2

REPORT INFORMATION
  Report Type: Spontaneous
  Country: US (occurrence: US)
  Receive Date: 20210531
  Receipt Date: 20210531
  Transmission Date: 20210717
  Serious: Yes (Other)
  Sender: FDA-Public Use
  Company Number: US-PURDUE-USA-2020-0204725

PATIENT

DRUGS (1)
  1. OXYCODONE HYDROCHLORIDE (SIMILAR TO NDA 22?272) [Suspect]
     Active Substance: OXYCODONE HYDROCHLORIDE
     Indication: PAIN
     Dosage: UNKNOWN
     Route: 065

REACTIONS (9)
  - Depression [Unknown]
  - Emotional distress [Unknown]
  - Injury [Unknown]
  - Pain [Unknown]
  - Hypertension [Unknown]
  - Hyperhidrosis [Unknown]
  - Drug dependence [Unknown]
  - Tremor [Unknown]
  - Anxiety [Unknown]
